FAERS Safety Report 6735015-1 (Version None)
Quarter: 2010Q2

REPORT INFORMATION
  Report Type: 
  Country: None (occurrence: None)
  Receive Date: 20100521
  Receipt Date: 20100428
  Transmission Date: 20101027
  Serious: Yes (Hospitalization, Other)
  Sender: FDA-Public Use
  Company Number: US-BAYER-201013309NA

PATIENT
  Age: 22 Year
  Sex: Female
  Weight: 93 kg

DRUGS (5)
  1. YAZ [Suspect]
     Indication: DRUG USE FOR UNKNOWN INDICATION
     Route: 048
     Dates: start: 20060601, end: 20090901
  2. CYMBALTA [Concomitant]
     Indication: DEPRESSION
     Dosage: TOTAL DAILY DOSE: 30 MG  UNIT DOSE: 30 MG
     Route: 048
     Dates: start: 20080501
  3. TRAMADOL HCL [Concomitant]
     Indication: DYSMENORRHOEA
     Route: 065
     Dates: start: 20080501
  4. HYDROCODONE [Concomitant]
     Indication: DYSMENORRHOEA
     Route: 065
     Dates: start: 20080501
  5. MULTI-VITAMIN [Concomitant]
     Route: 048

REACTIONS (3)
  - ABDOMINAL PAIN UPPER [None]
  - CHOLECYSTITIS CHRONIC [None]
  - CHOLELITHIASIS [None]
